FAERS Safety Report 10372523 (Version 1)
Quarter: 2014Q3

REPORT INFORMATION
  Report Type: Spontaneous
  Country: US (occurrence: US)
  Receive Date: 20140808
  Receipt Date: 20140808
  Transmission Date: 20150326
  Serious: Yes (Hospitalization)
  Sender: FDA-Public Use
  Company Number: US-BRISTOL-MYERS SQUIBB COMPANY-19156090

PATIENT
  Age: 41 Year
  Sex: Female

DRUGS (2)
  1. FENTANYL. [Suspect]
     Active Substance: FENTANYL
  2. SPRYCEL [Suspect]
     Active Substance: DASATINIB
     Dosage: TABLET
     Route: 048
     Dates: start: 201302

REACTIONS (1)
  - Gastrointestinal disorder [Unknown]
